FAERS Safety Report 9403362 (Version 1)
Quarter: 2013Q3

REPORT INFORMATION
  Report Type: Spontaneous
  Country: US (occurrence: US)
  Receive Date: 20130716
  Receipt Date: 20130716
  Transmission Date: 20140515
  Serious: No
  Sender: FDA-Public Use
  Company Number: US-009507513-1307USA007543

PATIENT
  Sex: Male

DRUGS (2)
  1. CLARITIN-D-12 [Suspect]
     Indication: HYPERSENSITIVITY
     Dosage: 5 MG, BID
     Route: 048
  2. CLARITIN-D-12 [Suspect]
     Indication: RESPIRATORY TRACT CONGESTION

REACTIONS (1)
  - Drug effect decreased [Unknown]
